FAERS Safety Report 6560880-0 (Version None)
Quarter: 2010Q1

REPORT INFORMATION
  Report Type: 
  Country: None (occurrence: None)
  Receive Date: 20100129
  Receipt Date: 20090924
  Transmission Date: 20100710
  Serious: Yes (Hospitalization)
  Sender: FDA-Public Use
  Company Number: US-ABBOTT-09P-163-0599646-00

PATIENT
  Sex: Female
  Weight: 68.1 kg

DRUGS (19)
  1. HUMIRA [Suspect]
     Indication: RHEUMATOID ARTHRITIS
     Route: 058
     Dates: start: 20070101, end: 20090301
  2. HUMIRA [Suspect]
     Route: 058
     Dates: start: 20090824
  3. AMBIEN [Concomitant]
     Indication: DRUG USE FOR UNKNOWN INDICATION
     Dosage: Q HS
  4. INDOMETHACIN [Concomitant]
     Indication: DRUG USE FOR UNKNOWN INDICATION
  5. GABAPENTIN [Concomitant]
     Indication: DRUG USE FOR UNKNOWN INDICATION
  6. AVINZA [Concomitant]
     Indication: DRUG USE FOR UNKNOWN INDICATION
     Dosage: 60 MG Q AM AND 30 MG Q HS
  7. LIPITOR [Concomitant]
     Indication: DRUG USE FOR UNKNOWN INDICATION
     Dosage: QOD
  8. CENESTIN [Concomitant]
     Indication: DRUG USE FOR UNKNOWN INDICATION
  9. PROMETRIUM [Concomitant]
     Indication: DRUG USE FOR UNKNOWN INDICATION
  10. FOLIC ACID [Concomitant]
     Indication: DRUG USE FOR UNKNOWN INDICATION
     Dosage: QD
  11. WELLBUTRIN [Concomitant]
     Indication: DRUG USE FOR UNKNOWN INDICATION
  12. IMITREX [Concomitant]
     Indication: DRUG USE FOR UNKNOWN INDICATION
     Dosage: PRN QD
  13. MULTI-VITAMIN [Concomitant]
     Indication: DRUG USE FOR UNKNOWN INDICATION
  14. MEGA RED [Concomitant]
     Indication: DRUG USE FOR UNKNOWN INDICATION
     Dosage: QD
  15. CALCIUM WITH VITAMIN D [Concomitant]
     Indication: DRUG USE FOR UNKNOWN INDICATION
  16. PROTONIX [Concomitant]
     Indication: DRUG USE FOR UNKNOWN INDICATION
     Dosage: Q AM
  17. CO Q10 [Concomitant]
     Indication: DRUG USE FOR UNKNOWN INDICATION
  18. ZEGRID [Concomitant]
     Indication: DRUG USE FOR UNKNOWN INDICATION
     Dosage: Q HS
  19. LEVOTHYROXINE SODIUM [Concomitant]
     Indication: DRUG USE FOR UNKNOWN INDICATION
     Dosage: QD

REACTIONS (5)
  - ABDOMINAL PAIN [None]
  - BEDRIDDEN [None]
  - DEHYDRATION [None]
  - GASTROENTERITIS VIRAL [None]
  - PAIN [None]
